FAERS Safety Report 6682748-1 (Version None)
Quarter: 2010Q2

REPORT INFORMATION
  Report Type: 
  Country: None (occurrence: None)
  Receive Date: 20100415
  Receipt Date: 20100408
  Transmission Date: 20101027
  Serious: Yes (Death, Life-Threatening, Hospitalization)
  Sender: FDA-Public Use
  Company Number: IN-ELI_LILLY_AND_COMPANY-EWC030334103

PATIENT
  Sex: Female
  Weight: 76 kg

DRUGS (6)
  1. GEMCITABINE HCL [Suspect]
     Indication: BREAST CANCER
     Dosage: 1200 MG/M2, OTHER
     Route: 042
     Dates: start: 20030220, end: 20030227
  2. DOXORUBICIN HCL [Suspect]
     Indication: BREAST CANCER
     Dosage: 60 MG/M2, OTHER
     Route: 042
     Dates: start: 20030221, end: 20030221
  3. OMEPRAZOLE [Concomitant]
     Dosage: UNK, UNKNOWN
     Dates: start: 20030227
  4. PERINORM [Concomitant]
     Dosage: UNK, UNKNOWN
     Dates: start: 20030227
  5. LOMOTIL [Concomitant]
     Dosage: UNK, UNKNOWN
     Dates: start: 20030227
  6. ATIVAN [Concomitant]
     Dosage: UNK, UNKNOWN
     Dates: start: 20030227

REACTIONS (2)
  - INCORRECT DOSE ADMINISTERED [None]
  - NEUTROPENIC SEPSIS [None]
